FAERS Safety Report 8555202-X (Version None)
Quarter: 2012Q3

REPORT INFORMATION
  Report Type: 
  Country: None (occurrence: None)
  Receive Date: 20120731
  Receipt Date: 20120727
  Transmission Date: 20120928
  Serious: Yes (Hospitalization)
  Sender: FDA-Public Use
  Company Number: JP-ABBOTT-12P-087-0958189-00

PATIENT
  Age: 42 Year
  Sex: Male

DRUGS (1)
  1. ADALIMUMAB [Suspect]
     Indication: PSORIASIS
     Dates: start: 20101001

REACTIONS (1)
  - GASTROINTESTINAL AMYLOIDOSIS [None]
